FAERS Safety Report 4819840-X (Version None)
Quarter: 2005Q4

REPORT INFORMATION
  Report Type: 
  Country: None (occurrence: None)
  Receive Date: 20051102
  Receipt Date: 20051020
  Transmission Date: 20060501
  Serious: Yes (Hospitalization)
  Sender: FDA-Public Use
  Company Number: TCI2005A04440

PATIENT
  Age: 89 Year
  Sex: Female

DRUGS (4)
  1. LANSOPRAZOLE [Suspect]
     Indication: DISEASE RECURRENCE
     Dosage: 15 MG (15 MG, 1 IN 1 D), PER ORAL
     Route: 048
     Dates: start: 20050811, end: 20050928
  2. LANSOPRAZOLE [Suspect]
     Indication: REFLUX OESOPHAGITIS
     Dosage: 15 MG (15 MG, 1 IN 1 D), PER ORAL
     Route: 048
     Dates: start: 20050811, end: 20050928
  3. DRUGS FOR FUNCTIONAL GASTROINTEST. DISORDERS [Concomitant]
  4. NSAID'S [Concomitant]

REACTIONS (2)
  - FALL [None]
  - FRACTURE [None]
